FAERS Safety Report 8157921-6 (Version None)
Quarter: 2012Q1

REPORT INFORMATION
  Report Type: 
  Country: None (occurrence: None)
  Receive Date: 20120222
  Receipt Date: 20120215
  Transmission Date: 20120608
  Serious: Yes (Hospitalization)
  Sender: FDA-Public Use
  Company Number: PHHY2011KR105549

PATIENT
  Sex: Male

DRUGS (3)
  1. VIDAZA [Concomitant]
  2. EXJADE [Suspect]
     Dosage: 625 MG,
     Route: 048
     Dates: start: 20111130
  3. EXJADE [Suspect]
     Indication: IRON OVERLOAD
     Dosage: 625 MG,
     Route: 048
     Dates: start: 20090304

REACTIONS (9)
  - RED BLOOD CELL COUNT DECREASED [None]
  - LUNG INFECTION [None]
  - INFLAMMATION [None]
  - GENERALISED OEDEMA [None]
  - THROMBOCYTOPENIA [None]
  - PNEUMONIA [None]
  - RENAL IMPAIRMENT [None]
  - FACE OEDEMA [None]
  - PLATELET COUNT DECREASED [None]
